FAERS Safety Report 8537025-0 (Version None)
Quarter: 2012Q3

REPORT INFORMATION
  Report Type: 
  Country: None (occurrence: None)
  Receive Date: 20120713
  Receipt Date: 20120702
  Transmission Date: 20120928
  Serious: Yes (Other)
  Sender: FDA-Public Use
  Company Number: BR-GDP-12414089

PATIENT
  Sex: Female

DRUGS (1)
  1. TRI-LUMA [Suspect]
     Indication: CHLOASMA
     Dates: start: 20120522, end: 20120604

REACTIONS (9)
  - MEDICATION RESIDUE [None]
  - OCULAR HYPERAEMIA [None]
  - KERATITIS [None]
  - EYE PRURITUS [None]
  - ACCIDENTAL EXPOSURE [None]
  - EYE IRRITATION [None]
  - EYE BURNS [None]
  - EYE SWELLING [None]
  - EYE PAIN [None]
